FAERS Safety Report 25631790 (Version 2)
Quarter: 2025Q3

REPORT INFORMATION
  Report Type: Spontaneous
  Country: US (occurrence: US)
  Receive Date: 20250801
  Receipt Date: 20250930
  Transmission Date: 20251021
  Serious: Yes (Death)
  Sender: ROCHE
  Company Number: US-CHEPLA-2025008722

PATIENT
  Age: 76 Year
  Sex: Female

DRUGS (5)
  1. MOSUNETUZUMAB [Suspect]
     Active Substance: MOSUNETUZUMAB
     Indication: Follicular lymphoma
     Dosage: PER INSTITUTIONAL STEP-UP PROTOCOL (CYCLE 1 DAY 1: 1 MG, CYCLE 1 DAY 8: 2 MG; CYCLE 1 DAY 15: 60 MG,
     Route: 042
     Dates: start: 202411
  2. GANCICLOVIR [Suspect]
     Active Substance: GANCICLOVIR
     Indication: Human herpesvirus 6 infection
     Dosage: RENALLY DOSED
     Route: 042
  3. THIAMINE [Concomitant]
     Active Substance: THIAMINE
     Route: 042
  4. DEXAMETHASONE [Concomitant]
     Active Substance: DEXAMETHASONE
     Route: 042
  5. ACYCLOVIR [Concomitant]
     Active Substance: ACYCLOVIR
     Route: 042

REACTIONS (2)
  - Off label use [Unknown]
  - Encephalitis herpes [Fatal]
